FAERS Safety Report 5095067-4 (Version None)
Quarter: 2006Q3

REPORT INFORMATION
  Report Type: 
  Country: None (occurrence: None)
  Receive Date: 20060901
  Receipt Date: 20060823
  Transmission Date: 20061208
  Serious: Yes (Other)
  Sender: FDA-Public Use
  Company Number: PHMT2006CA01705

PATIENT
  Age: 40 Year
  Sex: Female

DRUGS (1)
  1. DIOVAN [Suspect]
     Route: 048

REACTIONS (1)
  - PEMPHIGOID [None]
